FAERS Safety Report 22820956 (Version 13)
Quarter: 2024Q3

REPORT INFORMATION
  Report Type: Spontaneous
  Country: US (occurrence: US)
  Receive Date: 20230814
  Receipt Date: 20240702
  Transmission Date: 20241017
  Serious: No
  Sender: PFIZER
  Company Number: US-PFIZER INC-PV202300109886

PATIENT
  Age: 70 Year
  Sex: Male
  Weight: 81.65 kg

DRUGS (5)
  1. LORBRENA [Suspect]
     Active Substance: LORLATINIB
     Indication: Lung neoplasm malignant
     Dosage: 100 MG, 1X/DAY
     Route: 048
  2. LORBRENA [Suspect]
     Active Substance: LORLATINIB
     Indication: Brain neoplasm
     Dosage: 75 MG, DAILY (3 TABLETS 25 MG, DAILY)
     Route: 048
  3. LORBRENA [Suspect]
     Active Substance: LORLATINIB
     Indication: Chemotherapy
     Dosage: 70 MG ( AS REPORTED), DAILY
     Route: 048
  4. LORBRENA [Suspect]
     Active Substance: LORLATINIB
     Indication: Neoplasm malignant
  5. BRIMONIDINE [Concomitant]
     Active Substance: BRIMONIDINE TARTRATE
     Indication: Glaucoma
     Dosage: UNK

REACTIONS (2)
  - Visual impairment [Recovering/Resolving]
  - Visual acuity reduced [Not Recovered/Not Resolved]
